FAERS Safety Report 12893592 (Version 2)
Quarter: 2016Q4

REPORT INFORMATION
  Report Type: Spontaneous
  Country: US (occurrence: US)
  Receive Date: 20161028
  Receipt Date: 20161110
  Transmission Date: 20170207
  Serious: No
  Sender: FDA-Public Use
  Company Number: US-BAYER-2016-207773

PATIENT
  Age: 38 Year
  Sex: Female
  Weight: 63.3 kg

DRUGS (4)
  1. CLONAZEPAM. [Concomitant]
     Active Substance: CLONAZEPAM
  2. MIRALAX [Suspect]
     Active Substance: POLYETHYLENE GLYCOL 3350
     Indication: COLONOSCOPY
     Dosage: 14 DF, UNK
     Route: 048
     Dates: start: 2015
  3. MIRALAX [Suspect]
     Active Substance: POLYETHYLENE GLYCOL 3350
     Indication: COLONOSCOPY
     Dosage: 14 DF, UNK
     Route: 048
     Dates: start: 201608
  4. AMITRIPTYLINE [Concomitant]
     Active Substance: AMITRIPTYLINE

REACTIONS (5)
  - Product use issue [None]
  - Product use issue [None]
  - Hyperhidrosis [Recovered/Resolved]
  - Off label use [Unknown]
  - Product use issue [None]

NARRATIVE: CASE EVENT DATE: 2015
